FAERS Safety Report 4975251-8 (Version None)
Quarter: 2006Q2

REPORT INFORMATION
  Report Type: 
  Country: None (occurrence: None)
  Receive Date: 20060418
  Receipt Date: 20050713
  Transmission Date: 20061013
  Serious: Yes (Hospitalization)
  Sender: FDA-Public Use
  Company Number: US-MERCK-0507USA01776

PATIENT
  Age: 59 Year
  Sex: Male
  Weight: 82 kg

DRUGS (5)
  1. VIOXX [Suspect]
     Indication: PAIN IN EXTREMITY
     Route: 048
     Dates: start: 19990101, end: 20030601
  2. VIOXX [Suspect]
     Indication: PLANTAR FASCIITIS
     Route: 048
     Dates: start: 19990101, end: 20030601
  3. VIOXX [Suspect]
     Route: 048
     Dates: start: 19990101, end: 20030601
  4. VIOXX [Suspect]
     Route: 048
     Dates: start: 19990101, end: 20030601
  5. ASPIRIN [Concomitant]
     Route: 065

REACTIONS (13)
  - ANGINA UNSTABLE [None]
  - ARTHROPATHY [None]
  - CHEST PAIN [None]
  - CORONARY ARTERY DISEASE [None]
  - DYSPNOEA [None]
  - FALL [None]
  - HYPERLIPIDAEMIA [None]
  - INJECTION SITE INDURATION [None]
  - JOINT EFFUSION [None]
  - MUSCULOSKELETAL CHEST PAIN [None]
  - MYOCARDIAL ISCHAEMIA [None]
  - POST PROCEDURAL DISCOMFORT [None]
  - SINUS BRADYCARDIA [None]
